FAERS Safety Report 7913919-1 (Version None)
Quarter: 2011Q4

REPORT INFORMATION
  Report Type: 
  Country: None (occurrence: None)
  Receive Date: 20111115
  Receipt Date: 20111110
  Transmission Date: 20120403
  Serious: Yes (Other)
  Sender: FDA-Public Use
  Company Number: US-PFIZER INC-2011275967

PATIENT
  Age: 53 Year
  Sex: Female

DRUGS (3)
  1. AMLODIPINE BESYLATE [Suspect]
     Dosage: 5 MG, 1X/DAY
  2. CALCIUM CARBONATE [Suspect]
     Dosage: 1/2 X DAY
  3. ACETYLSALICYLIC ACID [Concomitant]
     Dosage: UNK

REACTIONS (8)
  - CONSTIPATION [None]
  - WEIGHT INCREASED [None]
  - TETANUS [None]
  - JOINT SWELLING [None]
  - POLLAKIURIA [None]
  - SLEEP DISORDER [None]
  - OEDEMA PERIPHERAL [None]
  - VERTIGO [None]
